FAERS Safety Report 7093928-8 (Version None)
Quarter: 2010Q4

REPORT INFORMATION
  Report Type: 
  Country: None (occurrence: None)
  Receive Date: 20101110
  Receipt Date: 20101102
  Transmission Date: 20110411
  Serious: Yes (Death)
  Sender: FDA-Public Use
  Company Number: US-ABBOTT-10P-163-0660720-00

PATIENT
  Sex: Female
  Weight: 10.9 kg

DRUGS (1)
  1. OMNICEF [Suspect]
     Indication: EAR INFECTION
     Dates: end: 20100728

REACTIONS (11)
  - BLOOD GLUCOSE INCREASED [None]
  - CYANOSIS [None]
  - FEELING COLD [None]
  - LUNG DISORDER [None]
  - MIOSIS [None]
  - PULSE ABSENT [None]
  - PYREXIA [None]
  - RESPIRATORY ARREST [None]
  - UNRESPONSIVE TO STIMULI [None]
  - VOMITING [None]
  - WHEEZING [None]
